FAERS Safety Report 20091008 (Version 1)
Quarter: 2021Q4

REPORT INFORMATION
  Report Type: Spontaneous
  Country: US (occurrence: None)
  Receive Date: 20211119
  Receipt Date: 20211119
  Transmission Date: 20220303
  Serious: Yes (Other)
  Sender: FDA-Public Use
  Company Number: None

PATIENT
  Sex: Female
  Weight: 90.72 kg

DRUGS (1)
  1. MIRENA [Suspect]
     Active Substance: LEVONORGESTREL
     Indication: Endometriosis
     Route: 015
     Dates: start: 2003

REACTIONS (9)
  - Uterine spasm [None]
  - Withdrawal syndrome [None]
  - Illness [None]
  - Asthenia [None]
  - Urinary incontinence [None]
  - Arthralgia [None]
  - Pain [None]
  - Memory impairment [None]
  - Thinking abnormal [None]
